FAERS Safety Report 18435475 (Version 1)
Quarter: 2020Q4

REPORT INFORMATION
  Report Type: Spontaneous
  Country: US (occurrence: US)
  Receive Date: 20201027
  Receipt Date: 20201027
  Transmission Date: 20210114
  Serious: No
  Sender: FDA-Public Use
  Company Number: US-BEH-2020124196

PATIENT
  Age: 84 Year
  Sex: Male
  Weight: 78.01 kg

DRUGS (2)
  1. HAEGARDA [Suspect]
     Active Substance: HUMAN C1-ESTERASE INHIBITOR
     Indication: HEREDITARY ANGIOEDEMA
     Dosage: 3000 INTERNATIONAL UNIT
     Route: 058
     Dates: start: 2020
  2. HAEGARDA [Suspect]
     Active Substance: HUMAN C1-ESTERASE INHIBITOR
     Indication: PROPHYLAXIS
     Dosage: 4800 UNK, BIW (EVERY 3-4 DAYS)
     Route: 058
     Dates: start: 20200904

REACTIONS (4)
  - No adverse event [Unknown]
  - Product preparation issue [Unknown]
  - Product use issue [Unknown]
  - Device issue [Unknown]

NARRATIVE: CASE EVENT DATE: 20201026
